FAERS Safety Report 11253230 (Version 1)
Quarter: 2015Q3

REPORT INFORMATION
  Report Type: Spontaneous
  Country: PL (occurrence: PL)
  Receive Date: 20150709
  Receipt Date: 20150709
  Transmission Date: 20151125
  Serious: Yes (Hospitalization, Other)
  Sender: FDA-Public Use
  Company Number: PL-THE MEDICINES COMPANY-PL-MDCO-15-00350

PATIENT
  Age: 69 Year
  Sex: Female

DRUGS (8)
  1. BISOPROLOLI FUMARAS [Concomitant]
     Indication: CORONARY ARTERY DISEASE
  2. ANGIOX [Suspect]
     Active Substance: BIVALIRUDIN
     Indication: PERCUTANEOUS CORONARY INTERVENTION
     Route: 040
     Dates: start: 20141022, end: 20141022
  3. TICAGRELOR [Suspect]
     Active Substance: TICAGRELOR
     Indication: THROMBOSIS PROPHYLAXIS
     Route: 048
     Dates: start: 20141022
  4. ROSUVASTATINUM [Concomitant]
     Indication: HYPERCHOLESTEROLAEMIA
  5. PANTOPRAZOLUM [Concomitant]
     Indication: PROPHYLAXIS
     Dates: start: 20140304
  6. ANGIOX [Suspect]
     Active Substance: BIVALIRUDIN
     Dosage: 1.75 MG/KG/H
     Route: 042
     Dates: start: 20141022, end: 20141022
  7. ACETYLSALICYLIC ACID [Suspect]
     Active Substance: ASPIRIN
     Indication: THROMBOSIS PROPHYLAXIS
     Route: 048
     Dates: start: 20120418
  8. RAMIPRILUM [Concomitant]
     Indication: CORONARY ARTERY DISEASE

REACTIONS (1)
  - Femoral artery aneurysm [Recovered/Resolved]

NARRATIVE: CASE EVENT DATE: 20141107
